FAERS Safety Report 25734553 (Version 1)
Quarter: 2025Q3

REPORT INFORMATION
  Report Type: Spontaneous
  Country: EU (occurrence: EU)
  Receive Date: 20250828
  Receipt Date: 20250828
  Transmission Date: 20251020
  Serious: Yes (Hospitalization, Other)
  Sender: LEGACY PHARMACEUTICAL PACKAGING
  Company Number: EU-LEGACY PHARMA INC. SEZC-LGP202508-000243

PATIENT
  Age: 20 Year
  Sex: Female

DRUGS (1)
  1. AZATHIOPRINE [Suspect]
     Active Substance: AZATHIOPRINE
     Indication: Crohn^s disease
     Route: 065

REACTIONS (8)
  - Ileal stenosis [Recovered/Resolved]
  - Fistula [Recovered/Resolved]
  - Dysuria [Recovered/Resolved]
  - Faecaluria [Recovered/Resolved]
  - Splenomegaly [Recovered/Resolved]
  - Pancytopenia [Recovered/Resolved]
  - Visceral leishmaniasis [Recovered/Resolved]
  - Product use in unapproved indication [Unknown]
